FAERS Safety Report 5317199-5 (Version None)
Quarter: 2007Q2

REPORT INFORMATION
  Report Type: 
  Country: None (occurrence: None)
  Receive Date: 20070504
  Receipt Date: 20070424
  Transmission Date: 20071010
  Serious: Yes (Hospitalization)
  Sender: FDA-Public Use
  Company Number: US-PFIZER INC-2007034135

PATIENT
  Sex: Male
  Weight: 81.6 kg

DRUGS (2)
  1. CHANTIX [Suspect]
     Indication: SMOKING CESSATION THERAPY
  2. TOPROL-XL [Concomitant]

REACTIONS (3)
  - ARTERIAL STENT INSERTION [None]
  - DRUG INEFFECTIVE [None]
  - NICOTINE DEPENDENCE [None]
